FAERS Safety Report 5160949-1 (Version None)
Quarter: 2006Q4

REPORT INFORMATION
  Report Type: 
  Country: None (occurrence: None)
  Receive Date: 20061130
  Receipt Date: 20060118
  Transmission Date: 20070319
  Serious: No
  Sender: FDA-Public Use
  Company Number: US-BRISTOL-MYERS SQUIBB COMPANY-13250949

PATIENT
  Age: 81 Year
  Sex: Female
  Weight: 76 kg

DRUGS (7)
  1. AVALIDE [Suspect]
     Indication: CEREBROVASCULAR ACCIDENT
     Dates: start: 20060101
  2. AVALIDE [Suspect]
     Dosage: DOSAGE: 150/12.5MG
     Dates: start: 20060101
  3. ASPIRIN [Concomitant]
  4. PLAVIX [Concomitant]
  5. NORVASC [Concomitant]
  6. LIPITOR [Concomitant]
  7. VALIUM [Concomitant]

REACTIONS (1)
  - FATIGUE [None]
